FAERS Safety Report 7556421-1 (Version None)
Quarter: 2011Q2

REPORT INFORMATION
  Report Type: 
  Country: None (occurrence: None)
  Receive Date: 20110620
  Receipt Date: 20110609
  Transmission Date: 20111010
  Serious: Yes (Other)
  Sender: FDA-Public Use
  Company Number: JP-JNJFOC-20110606098

PATIENT
  Age: 76 Year
  Sex: Male

DRUGS (6)
  1. OLMESARTAN MEDOXOMIL [Concomitant]
     Route: 048
  2. DEPAS [Concomitant]
     Route: 048
  3. ITRACONAZOLE [Suspect]
     Indication: ORAL CANDIDIASIS
     Route: 048
     Dates: start: 20110422, end: 20110502
  4. VERAPAMIL HCL [Concomitant]
     Route: 048
  5. DECADRON [Concomitant]
     Route: 048
  6. LENDEM [Concomitant]
     Route: 048

REACTIONS (1)
  - GENERALISED OEDEMA [None]
